FAERS Safety Report 19842230 (Version 1)
Quarter: 2021Q3

REPORT INFORMATION
  Report Type: Report from Study
  Country: US (occurrence: US)
  Receive Date: 20210915
  Receipt Date: 20210915
  Transmission Date: 20211014
  Serious: Yes (Other)
  Sender: FDA-Public Use
  Company Number: US-JAZZ-2021-US-016826

PATIENT
  Age: 61 Year
  Sex: Female

DRUGS (1)
  1. XYWAV [Suspect]
     Active Substance: CALCIUM OXYBATE\MAGNESIUM OXYBATE\POTASSIUM OXYBATE\SODIUM OXYBATE
     Indication: NARCOLEPSY
     Dosage: 4.5 GRAM, BID
     Route: 048
     Dates: start: 202012

REACTIONS (8)
  - Diabetes mellitus [Unknown]
  - Fall [Recovered/Resolved]
  - Sarcoidosis [Unknown]
  - Inguinal hernia [Not Recovered/Not Resolved]
  - Obesity [Not Recovered/Not Resolved]
  - Micturition urgency [Unknown]
  - Incisional hernia [Unknown]
  - Contusion [Unknown]

NARRATIVE: CASE EVENT DATE: 20210907
